FAERS Safety Report 18162109 (Version 1)
Quarter: 2020Q3

REPORT INFORMATION
  Report Type: Spontaneous
  Country: US (occurrence: US)
  Receive Date: 20200818
  Receipt Date: 20200818
  Transmission Date: 20201103
  Serious: Yes (Disabling)
  Sender: FDA-Public Use
  Company Number: None

PATIENT
  Age: 77 Year
  Sex: Female
  Weight: 85.5 kg

DRUGS (15)
  1. TELMISARTRAN 80MG [Concomitant]
  2. ATORVASTATIN 10MG [Concomitant]
     Active Substance: ATORVASTATIN
  3. BUMETANIDE 0.5MG [Concomitant]
  4. MAGNESIUM [Concomitant]
     Active Substance: MAGNESIUM
  5. PRED 500MG [Concomitant]
  6. HYDROCHLOROTHHIAZIDE 12.5MG [Concomitant]
  7. LEVOITHYROXINE 88MCG [Concomitant]
  8. POTASSIUM [Concomitant]
     Active Substance: POTASSIUM
  9. HYDROXYCHLOROQUINE 200MG [Concomitant]
     Active Substance: HYDROXYCHLOROQUINE
  10. ASPIRIN (LOW DOSE) [Concomitant]
  11. COENZYME Q10 [Concomitant]
     Active Substance: DIETARY SUPPLEMENT\UBIDECARENONE
  12. MEGA RED [Concomitant]
  13. PROBIOTIC [Concomitant]
     Active Substance: PROBIOTICS NOS
  14. ZOLPIDEM ER SUN PHARMA GLOB WHITE AND YELLOW 308 [Suspect]
     Active Substance: ZOLPIDEM TARTRATE
     Indication: INSOMNIA
     Dosage: ?          QUANTITY:1 TABLET(S);?
     Route: 048
     Dates: start: 20200718, end: 20200728
  15. AMLODOPINE 10MG [Concomitant]

REACTIONS (7)
  - Pruritus [None]
  - Rash macular [None]
  - Product substitution issue [None]
  - Peripheral swelling [None]
  - Gait inability [None]
  - Skin exfoliation [None]
  - Dysstasia [None]

NARRATIVE: CASE EVENT DATE: 20200718
